FAERS Safety Report 7979353-3 (Version None)
Quarter: 2011Q4

REPORT INFORMATION
  Report Type: 
  Country: None (occurrence: None)
  Receive Date: 20111129
  Receipt Date: 20110830
  Transmission Date: 20120403
  Serious: Yes (Other)
  Sender: FDA-Public Use
  Company Number: PHEH2011US02834

PATIENT
  Age: 5 Year
  Sex: Male

DRUGS (8)
  1. AFINITOR [Suspect]
     Indication: TUBEROUS SCLEROSIS
     Dosage: 2.5 MG, DAILY, ORAL
     Route: 048
     Dates: start: 20110816
  2. TRILEPTAL [Concomitant]
  3. KEPPRA [Concomitant]
  4. SIMVASTATIN [Concomitant]
  5. TOPAMAX [Concomitant]
  6. GUANFACINE HYDROCHLORIDE [Concomitant]
  7. CLARITIN [Concomitant]
  8. SINGULAIR [Concomitant]

REACTIONS (1)
  - CONVULSION [None]
